FAERS Safety Report 6628758-1 (Version None)
Quarter: 2010Q1

REPORT INFORMATION
  Report Type: 
  Country: None (occurrence: None)
  Receive Date: 20100311
  Receipt Date: 20100308
  Transmission Date: 20100710
  Serious: Yes (Hospitalization)
  Sender: FDA-Public Use
  Company Number: DE-BAYER-201018245GPV

PATIENT
  Sex: Male

DRUGS (3)
  1. AVELOX [Suspect]
     Indication: SEPSIS
     Dosage: TOTAL DAILY DOSE: 200 MG  UNIT DOSE: 400 MG
     Route: 041
     Dates: start: 20100302, end: 20100301
  2. MEROPENEM [Suspect]
     Indication: SEPSIS
     Dosage: TOTAL DAILY DOSE: 1000 MG
     Route: 041
     Dates: start: 20100302
  3. PANTOPRAZOL-NATRIUM [Concomitant]
     Indication: PROPHYLAXIS AGAINST GASTROINTESTINAL ULCER
     Dates: start: 20100301

REACTIONS (3)
  - AGGRESSION [None]
  - DELIRIUM [None]
  - DISORIENTATION [None]
